FAERS Safety Report 13919941 (Version 1)
Quarter: 2017Q3

REPORT INFORMATION
  Report Type: Spontaneous
  Country: FR (occurrence: FR)
  Receive Date: 20170830
  Receipt Date: 20170830
  Transmission Date: 20171127
  Serious: Yes (Hospitalization)
  Sender: FDA-Public Use
  Company Number: FR-MERCK KGAA-2025297

PATIENT
  Sex: Female

DRUGS (1)
  1. NOVOTHYROX [Suspect]
     Active Substance: LEVOTHYROXINE SODIUM
     Indication: PRODUCT USED FOR UNKNOWN INDICATION
     Dates: start: 201705

REACTIONS (10)
  - Asthenia [None]
  - Headache [None]
  - Palpitations [None]
  - Amnesia [None]
  - Pollakiuria [None]
  - Somnolence [None]
  - Disturbance in attention [None]
  - Pain in extremity [None]
  - Weight increased [None]
  - Dyspnoea [None]

NARRATIVE: CASE EVENT DATE: 201706
